FAERS Safety Report 4673063-6 (Version None)
Quarter: 2005Q2

REPORT INFORMATION
  Report Type: 
  Country: None (occurrence: None)
  Receive Date: 20050525
  Receipt Date: 20050520
  Transmission Date: 20051028
  Serious: Yes (Life-Threatening, Hospitalization, Disabling, Other)
  Sender: FDA-Public Use
  Company Number: PHNU2005DE02009

PATIENT
  Age: 55 Year
  Sex: Female
  Weight: 77 kg

DRUGS (7)
  1. DICLOFENAC SODIUM [Suspect]
     Indication: INTERVERTEBRAL DISC PROTRUSION
     Route: 030
     Dates: start: 20020922
  2. OLFEN [Suspect]
     Indication: INTERVERTEBRAL DISC PROTRUSION
  3. DECORTIN [Concomitant]
     Dosage: 40 MG, QD
  4. KONAKION [Concomitant]
     Dosage: UNK DF, TID
  5. PROPRANOLOL HYDROCHLORIDE [Concomitant]
     Dosage: 5 MG, TID
  6. PANTOPRAZOLE SODIUM [Concomitant]
     Dosage: 20 MG, QD
  7. VOLTAREN D50 [Suspect]
     Indication: INTERVERTEBRAL DISC PROTRUSION
     Route: 048
     Dates: start: 20020922

REACTIONS (16)
  - ANTINUCLEAR ANTIBODY POSITIVE [None]
  - BLOOD ALKALINE PHOSPHATASE INCREASED [None]
  - BLOOD BILIRUBIN INCREASED [None]
  - DRUG TOXICITY [None]
  - FATIGUE [None]
  - GAMMA-GLUTAMYLTRANSFERASE INCREASED [None]
  - GENERAL PHYSICAL HEALTH DETERIORATION [None]
  - HEPATIC FAILURE [None]
  - HEPATITIS VIRAL [None]
  - HEPATOCELLULAR DAMAGE [None]
  - JAUNDICE [None]
  - LYMPHADENOPATHY [None]
  - PROTHROMBIN TIME PROLONGED [None]
  - REFUSAL OF TREATMENT BY PATIENT [None]
  - THYROID ADENOMA [None]
  - TRANSAMINASES INCREASED [None]
